FAERS Safety Report 9719163 (Version 4)
Quarter: 2014Q2

REPORT INFORMATION
  Report Type: Report from Study
  Country: US (occurrence: US)
  Receive Date: 20131127
  Receipt Date: 20140507
  Transmission Date: 20141212
  Serious: Yes (Other)
  Sender: FDA-Public Use
  Company Number: PHEH2013US024525

PATIENT
  Age: 62 Year
  Sex: Female

DRUGS (1)
  1. SOM230 [Suspect]
     Indication: PITUITARY-DEPENDENT CUSHING^S SYNDROME
     Dosage: UNK UKN, UNK
     Route: 058
     Dates: start: 201305, end: 201306

REACTIONS (3)
  - Thrombophlebitis superficial [Recovered/Resolved]
  - Hyperglycaemia [Recovered/Resolved]
  - Blood cortisol increased [Recovered/Resolved]
